FAERS Safety Report 5786456-0 (Version None)
Quarter: 2008Q2

REPORT INFORMATION
  Report Type: 
  Country: None (occurrence: None)
  Receive Date: 20080624
  Receipt Date: 20070716
  Transmission Date: 20081010
  Serious: No
  Sender: FDA-Public Use
  Company Number: US-ASTRAZENECA-2007UW16894

PATIENT
  Age: 35 Year
  Sex: Female

DRUGS (5)
  1. PULMICORT-100 [Suspect]
     Indication: ASTHMA
     Route: 055
     Dates: start: 20070601
  2. FORADIL [Concomitant]
  3. ZYRTEC [Concomitant]
  4. OMEPRAZOLE [Concomitant]
     Route: 048
  5. THE PILL [Concomitant]

REACTIONS (1)
  - CHEST DISCOMFORT [None]
